FAERS Safety Report 17297715 (Version 2)
Quarter: 2020Q1

REPORT INFORMATION
  Report Type: Spontaneous
  Country: IT (occurrence: IT)
  Receive Date: 20200122
  Receipt Date: 20200327
  Transmission Date: 20200409
  Serious: Yes (Other)
  Sender: FDA-Public Use
  Company Number: IT-TEVA-2020-IT-1171283

PATIENT
  Age: 56 Year
  Sex: Female

DRUGS (6)
  1. DELTACORTENE [Concomitant]
     Active Substance: PREDNISONE
  2. ENDOXAN BAXTER [Suspect]
     Active Substance: CYCLOPHOSPHAMIDE
     Indication: BREAST CANCER
     Route: 042
     Dates: start: 20191107, end: 20191219
  3. CONTRAMAL [Concomitant]
     Active Substance: TRAMADOL HYDROCHLORIDE
     Indication: ANALGESIC THERAPY
  4. EPIRUBICIN HYDROCHLORIDE. [Suspect]
     Active Substance: EPIRUBICIN HYDROCHLORIDE
     Indication: BREAST CANCER
     Route: 042
     Dates: start: 20191107, end: 20191219
  5. PLASIL [Concomitant]
     Active Substance: METOCLOPRAMIDE HYDROCHLORIDE
     Indication: ANTIEMETIC SUPPORTIVE CARE
  6. ONDANSETRON HYDROCHLORIDE. [Concomitant]
     Active Substance: ONDANSETRON HYDROCHLORIDE

REACTIONS (11)
  - Gastritis [Unknown]
  - Sleep disorder [Unknown]
  - Xerophthalmia [Unknown]
  - Constipation [Unknown]
  - Dysgeusia [Unknown]
  - Myalgia [Unknown]
  - Hot flush [Unknown]
  - Alopecia [Unknown]
  - Paraesthesia [Unknown]
  - Diarrhoea [Unknown]
  - Gingivitis [Unknown]

NARRATIVE: CASE EVENT DATE: 20191207
